FAERS Safety Report 15170877 (Version 1)
Quarter: 2018Q3

REPORT INFORMATION
  Report Type: Spontaneous
  Country: IT (occurrence: IT)
  Receive Date: 20180720
  Receipt Date: 20180720
  Transmission Date: 20181010
  Serious: Yes (Hospitalization)
  Sender: FDA-Public Use
  Company Number: IT-ASTRAZENECA-2018SE89810

PATIENT
  Age: 47 Year
  Sex: Female

DRUGS (5)
  1. LIBRIUM [Suspect]
     Active Substance: CHLORDIAZEPOXIDE HYDROCHLORIDE
     Indication: INTENTIONAL SELF-INJURY
     Route: 065
     Dates: start: 20180505, end: 20180505
  2. TRITTICO [Concomitant]
     Active Substance: TRAZODONE HYDROCHLORIDE
  3. QUETIAPINE. [Suspect]
     Active Substance: QUETIAPINE
     Indication: INTENTIONAL SELF-INJURY
     Route: 048
     Dates: start: 20180505, end: 20180505
  4. DEPAKIN [Concomitant]
     Active Substance: VALPROATE SODIUM
  5. EN [Concomitant]
     Active Substance: DELORAZEPAM

REACTIONS (2)
  - Drug abuse [Unknown]
  - Sopor [Unknown]

NARRATIVE: CASE EVENT DATE: 20180505
